FAERS Safety Report 6464847-2 (Version None)
Quarter: 2009Q4

REPORT INFORMATION
  Report Type: 
  Country: None (occurrence: None)
  Receive Date: 20091201
  Receipt Date: 20091123
  Transmission Date: 20100525
  Serious: Yes (Other)
  Sender: FDA-Public Use
  Company Number: A0823486A

PATIENT
  Age: 64 Year
  Sex: Male
  Weight: 57.7 kg

DRUGS (2)
  1. ZIAGEN [Suspect]
     Indication: DRUG USE FOR UNKNOWN INDICATION
     Dosage: 600MG PER DAY
     Route: 065
  2. AMINO ACID SUPPLEMENT [Concomitant]
     Route: 065

REACTIONS (5)
  - COUGH [None]
  - MUSCLE ATROPHY [None]
  - MUSCULAR WEAKNESS [None]
  - NOCTURNAL DYSPNOEA [None]
  - WALKING AID USER [None]
